FAERS Safety Report 5211449-1 (Version None)
Quarter: 2006Q4

REPORT INFORMATION
  Report Type: 
  Country: None (occurrence: None)
  Receive Date: 20061115
  Receipt Date: 20060918
  Transmission Date: 20070319
  Serious: No
  Sender: FDA-Public Use
  Company Number: 200615765BWH

PATIENT
  Age: 59 Year
  Sex: Male

DRUGS (16)
  1. NEXAVAR [Suspect]
     Indication: RENAL CELL CARCINOMA STAGE UNSPECIFIED
     Dosage: 400 MG, QD; ORAL
     Route: 048
     Dates: start: 20060901
  2. NORVASC [Concomitant]
  3. LOPRESSOR [Concomitant]
  4. SYNTHROID [Concomitant]
  5. PRAVASTATIN [Concomitant]
  6. REPLIVA [Concomitant]
  7. FERROUS SULFATE TAB [Concomitant]
  8. PEG [Concomitant]
  9. ZOFRAN [Concomitant]
  10. OXYCODONE HCL [Concomitant]
  11. MARINOL [Concomitant]
  12. PROMETHAZINE [Concomitant]
  13. SIMETHICONE [Concomitant]
  14. AVINZA [Concomitant]
  15. ALLEGRA-D [FEXOFENADINE HYDROCHLORIDE, PSEUDOEPHEDRINE HYDROCHLORIDE) [Concomitant]
  16. PROCRIT [Concomitant]

REACTIONS (3)
  - ASTHENIA [None]
  - RASH GENERALISED [None]
  - TREMOR [None]
